FAERS Safety Report 18737444 (Version 1)
Quarter: 2021Q1

REPORT INFORMATION
  Report Type: Spontaneous
  Country: US (occurrence: US)
  Receive Date: 20210113
  Receipt Date: 20210113
  Transmission Date: 20210419
  Serious: Yes (Hospitalization, Other)
  Sender: FDA-Public Use
  Company Number: US-ALLERGAN-2101375US

PATIENT
  Sex: Female

DRUGS (3)
  1. OCTREOTIDE. [Suspect]
     Active Substance: OCTREOTIDE
     Indication: METASTASIS
  2. OCTREOTIDE. [Suspect]
     Active Substance: OCTREOTIDE
     Indication: METASTATIC CARCINOID TUMOUR
     Route: 065
     Dates: end: 201706
  3. CITALOPRAM HYDROBROMIDE ? BP [Suspect]
     Active Substance: CITALOPRAM HYDROBROMIDE
     Indication: MAJOR DEPRESSION
     Route: 065
     Dates: start: 2018

REACTIONS (7)
  - Aortic valve incompetence [Unknown]
  - Pulmonary valve incompetence [Unknown]
  - Tricuspid valve incompetence [Unknown]
  - Carcinoid syndrome [Unknown]
  - Disease progression [Unknown]
  - Cardiac failure acute [Unknown]
  - Carcinoid heart disease [Unknown]

NARRATIVE: CASE EVENT DATE: 2018
